FAERS Safety Report 24820954 (Version 1)
Quarter: 2025Q1

REPORT INFORMATION
  Report Type: Spontaneous
  Country: US (occurrence: US)
  Receive Date: 20250108
  Receipt Date: 20250108
  Transmission Date: 20250409
  Serious: No
  Sender: SANOFI AVENTIS
  Company Number: US-SA-2025SA003679

PATIENT
  Sex: Male

DRUGS (5)
  1. DUPIXENT [Suspect]
     Active Substance: DUPILUMAB
     Indication: Neurodermatitis
     Dosage: 300 MG, QOW
     Route: 058
  2. HUMIRA [Suspect]
     Active Substance: ADALIMUMAB
  3. XOLAIR [Concomitant]
     Active Substance: OMALIZUMAB
  4. ORENCIA [Concomitant]
     Active Substance: ABATACEPT
  5. RINVOQ [Concomitant]
     Active Substance: UPADACITINIB

REACTIONS (13)
  - Pruritus [Unknown]
  - Scratch [Unknown]
  - Secretion discharge [Unknown]
  - Hypoacusis [Unknown]
  - Injection site urticaria [Unknown]
  - Vein rupture [Unknown]
  - Genital burning sensation [Recovering/Resolving]
  - Tongue discomfort [Recovered/Resolved]
  - Injection site haemorrhage [Unknown]
  - Injection site bruising [Unknown]
  - Rash [Unknown]
  - Drug resistance [Unknown]
  - Surgery [Unknown]
